FAERS Safety Report 6904938-2 (Version None)
Quarter: 2010Q3

REPORT INFORMATION
  Report Type: 
  Country: None (occurrence: None)
  Receive Date: 20100804
  Receipt Date: 20090807
  Transmission Date: 20110219
  Serious: No
  Sender: FDA-Public Use
  Company Number: US-PFIZER INC-2008042140

PATIENT
  Sex: Female
  Weight: 59 kg

DRUGS (10)
  1. LYRICA [Suspect]
     Indication: PROCEDURAL PAIN
     Dosage: 225 MG/DAY
     Dates: start: 20070101
  2. LYRICA [Suspect]
     Indication: FIBROMYALGIA
  3. LORTAB [Suspect]
     Indication: PAIN
     Dosage: UNK
  4. LORTAB [Suspect]
  5. TRAMADOL HYDROCHLORIDE [Concomitant]
     Dosage: UNK
  6. RELAFEN [Concomitant]
     Dosage: UNK
  7. RANITIDINE [Concomitant]
     Dosage: UNK
  8. ZANAFLEX [Concomitant]
     Dosage: UNK
  9. DARVOCET [Concomitant]
     Dosage: UNK
  10. MOBIC [Concomitant]
     Dosage: UNK

REACTIONS (12)
  - BLOOD GLUCOSE INCREASED [None]
  - DIARRHOEA [None]
  - FEELING OF BODY TEMPERATURE CHANGE [None]
  - FIBROMYALGIA [None]
  - INSOMNIA [None]
  - JOINT STIFFNESS [None]
  - MIGRAINE [None]
  - NAUSEA [None]
  - PAIN [None]
  - PRURITUS [None]
  - VOMITING [None]
  - WITHDRAWAL SYNDROME [None]
